FAERS Safety Report 13840262 (Version 2)
Quarter: 2017Q3

REPORT INFORMATION
  Report Type: Spontaneous
  Country: DE (occurrence: DE)
  Receive Date: 20170807
  Receipt Date: 20170810
  Transmission Date: 20171127
  Serious: Yes (Other)
  Sender: FDA-Public Use
  Company Number: DE-SHIRE-DE201717037

PATIENT
  Age: 15 Year
  Sex: Male
  Weight: 49.5 kg

DRUGS (3)
  1. INTUNIV [Suspect]
     Active Substance: GUANFACINE HYDROCHLORIDE
     Dosage: MEDICATION TAPERING AGAIN, 1X/DAY:QD
     Route: 048
     Dates: start: 20170617
  2. INTUNIV [Suspect]
     Active Substance: GUANFACINE HYDROCHLORIDE
     Dosage: 4 MG TO 1 MG TAPER, 1X/DAY:QD
     Route: 048
     Dates: start: 20170608, end: 20170614
  3. INTUNIV [Suspect]
     Active Substance: GUANFACINE HYDROCHLORIDE
     Indication: ATTENTION DEFICIT/HYPERACTIVITY DISORDER
     Dosage: 1 MG TO 4 MG TAPER, 1X/DAY:QD
     Route: 048
     Dates: start: 20161027

REACTIONS (5)
  - Syncope [Recovered/Resolved]
  - Oxygen saturation decreased [Unknown]
  - Seizure [Recovered/Resolved]
  - Exposure via inhalation [Unknown]
  - Head discomfort [Unknown]

NARRATIVE: CASE EVENT DATE: 20170607
